FAERS Safety Report 9808526 (Version 2)
Quarter: 2014Q1

REPORT INFORMATION
  Report Type: Spontaneous
  Country: US (occurrence: None)
  Receive Date: 20140108
  Receipt Date: 20140127
  Transmission Date: 20141002
  Serious: Yes (Other)
  Sender: FDA-Public Use
  Company Number: 2014SA000931

PATIENT
  Age: 68 Year
  Sex: Male
  Weight: 92.98 kg

DRUGS (6)
  1. GOLD BOND INTENSIVE RELIEF ANTI-ITCH LOTION [Suspect]
     Indication: PRURITUS
     Dosage: 5.5 OUNCE; TWICE A DAY
     Dates: end: 201312
  2. METFORMIN [Concomitant]
  3. TRICOR [Concomitant]
  4. LIPITOR [Concomitant]
  5. PROSCAR [Concomitant]
  6. TYLENOL [Concomitant]

REACTIONS (5)
  - Application site burn [None]
  - Burns second degree [None]
  - Burns first degree [None]
  - Chemical injury [None]
  - Blister [None]
